FAERS Safety Report 8511139-3 (Version None)
Quarter: 2012Q3

REPORT INFORMATION
  Report Type: 
  Country: None (occurrence: None)
  Receive Date: 20120716
  Receipt Date: 20120327
  Transmission Date: 20120928
  Serious: Yes (Other)
  Sender: FDA-Public Use
  Company Number: US-JNJCP-30000097546

PATIENT
  Age: 6 Month
  Sex: Male
  Weight: 9 kg

DRUGS (2)
  1. AVEENO BABY CALMING COMFORT LOTION 8OZ USA 381370036456 8137003645USA [Suspect]
     Dosage: ENOUGH TO MASSAGE FROM HEAD TO TOE, NAP TIME, MID MORNING AND AT NIGHT
     Route: 061
     Dates: start: 20120101, end: 20120325
  2. AVEENO BABY CALMING COMFORT BATH USA ABCCBTUS [Suspect]
     Dosage: ONE TIME AT NIGHT
     Route: 061

REACTIONS (4)
  - RENAL IMPAIRMENT [None]
  - LETHARGY [None]
  - PYREXIA [None]
  - STAPHYLOCOCCAL INFECTION [None]
